FAERS Safety Report 12753223 (Version 2)
Quarter: 2016Q3

REPORT INFORMATION
  Report Type: Spontaneous
  Country: IT (occurrence: IT)
  Receive Date: 20160916
  Receipt Date: 20160926
  Transmission Date: 20161109
  Serious: Yes (Death, Hospitalization, Other)
  Sender: FDA-Public Use
  Company Number: IT-ACCORD-044034

PATIENT
  Age: 82 Year
  Sex: Female

DRUGS (2)
  1. METHOTREXATE. [Suspect]
     Active Substance: METHOTREXATE
     Indication: RHEUMATOID ARTHRITIS
     Route: 048
  2. FOLINIC ACID [Concomitant]
     Active Substance: LEUCOVORIN

REACTIONS (3)
  - Toxicity to various agents [Unknown]
  - Pulmonary sepsis [Fatal]
  - Cytopenia [Fatal]
